FAERS Safety Report 22371661 (Version 1)
Quarter: 2023Q2

REPORT INFORMATION
  Report Type: Spontaneous
  Country: US (occurrence: US)
  Receive Date: 20230526
  Receipt Date: 20230526
  Transmission Date: 20230722
  Serious: No
  Sender: FDA-Public Use
  Company Number: US-BRISTOL-MYERS SQUIBB COMPANY-2023-043948

PATIENT
  Age: 96 Year
  Sex: Female
  Weight: 48.99 kg

DRUGS (2)
  1. CAMZYOS [Suspect]
     Active Substance: MAVACAMTEN
     Indication: Hypertrophic cardiomyopathy
     Route: 048
     Dates: start: 2023
  2. MIRALAX [Concomitant]
     Active Substance: POLYETHYLENE GLYCOL 3350
     Indication: Constipation

REACTIONS (4)
  - Dyspnoea [Unknown]
  - Fatigue [Unknown]
  - Hypersomnia [Unknown]
  - Hypotension [Unknown]

NARRATIVE: CASE EVENT DATE: 20230101
